FAERS Safety Report 6570631-1 (Version None)
Quarter: 2010Q1

REPORT INFORMATION
  Report Type: 
  Country: None (occurrence: None)
  Receive Date: 20100204
  Receipt Date: 20100129
  Transmission Date: 20100710
  Serious: Yes (Other)
  Sender: FDA-Public Use
  Company Number: US-PFIZER INC-2010013092

PATIENT
  Sex: Male
  Weight: 70.306 kg

DRUGS (5)
  1. CHANTIX [Suspect]
     Indication: SMOKING CESSATION THERAPY
     Dosage: 1 MG, 1X/DAY
     Route: 048
     Dates: start: 20091201
  2. CALCIUM [Concomitant]
  3. MAGNESIUM [Concomitant]
  4. VITAMIN B-12 [Concomitant]
  5. VITAMIN D [Concomitant]

REACTIONS (1)
  - HAEMOPTYSIS [None]
